FAERS Safety Report 6966354-7 (Version None)
Quarter: 2010Q3

REPORT INFORMATION
  Report Type: 
  Country: None (occurrence: None)
  Receive Date: 20100903
  Receipt Date: 20100826
  Transmission Date: 20110219
  Serious: Yes (Hospitalization)
  Sender: FDA-Public Use
  Company Number: DE-ROCHE-724378

PATIENT
  Sex: Male
  Weight: 72 kg

DRUGS (11)
  1. BEVACIZUMAB [Suspect]
     Indication: NON-SMALL CELL LUNG CANCER
     Dosage: THERAPY WITHHELD. LAST DOSE PRIOR TO SAE: 28 JULY 2010.
     Route: 042
     Dates: start: 20100424, end: 20100818
  2. BEVACIZUMAB [Suspect]
     Route: 042
     Dates: start: 20100820
  3. PEMETREXED [Suspect]
     Indication: NON-SMALL CELL LUNG CANCER
     Dosage: THERAPY WITHHELD. LAST DOSE PRIOR TO SAE: 28 JULY 2010, FORM:VIAL.
     Route: 042
     Dates: start: 20100424, end: 20100818
  4. PEMETREXED [Suspect]
     Route: 042
     Dates: start: 20100820
  5. CISPLATIN [Suspect]
     Indication: NON-SMALL CELL LUNG CANCER
     Dosage: LAST DOSE PRIOR TO SAE: 28 JULY 2010.
     Route: 042
     Dates: start: 20100424
  6. FOLIC ACID [Concomitant]
     Indication: PROPHYLAXIS
     Dates: start: 20100417
  7. CYANOCOBALAMIN [Concomitant]
     Indication: PROPHYLAXIS
     Dosage: DRUG NAME REPORTED AS: VITAMIN B 12.
     Dates: start: 20100416
  8. DEXAMETASONE [Concomitant]
     Indication: PROPHYLAXIS
     Dates: start: 20100423
  9. ZOPICLONE [Concomitant]
     Indication: INSOMNIA
     Dates: start: 20100614
  10. KALINOR [Concomitant]
     Dates: start: 20100727
  11. CALCILAC KT [Concomitant]
     Dates: start: 20100429

REACTIONS (2)
  - NAUSEA [None]
  - VERTIGO [None]
